FAERS Safety Report 5387791-0 (Version None)
Quarter: 2007Q3

REPORT INFORMATION
  Report Type: 
  Country: None (occurrence: None)
  Receive Date: 20070712
  Receipt Date: 20070712
  Transmission Date: 20080115
  Serious: No
  Sender: FDA-Public Use
  Company Number: None

PATIENT
  Age: 57 Year
  Sex: Male
  Weight: 104.3273 kg

DRUGS (1)
  1. GENTAMICIN SULFATE [Suspect]
     Dates: start: 20060317, end: 20060322

REACTIONS (12)
  - AMNESIA [None]
  - ARTHRALGIA [None]
  - BALANCE DISORDER [None]
  - DEAFNESS [None]
  - DISTURBANCE IN ATTENTION [None]
  - EAR INJURY [None]
  - EMOTIONAL DISORDER [None]
  - IMPAIRED WORK ABILITY [None]
  - NECK PAIN [None]
  - THINKING ABNORMAL [None]
  - VISUAL DISTURBANCE [None]
  - WALKING AID USER [None]
